FAERS Safety Report 6592889-5 (Version None)
Quarter: 2010Q1

REPORT INFORMATION
  Report Type: 
  Country: None (occurrence: None)
  Receive Date: 20100222
  Receipt Date: 20100212
  Transmission Date: 20100710
  Serious: Yes (Hospitalization)
  Sender: FDA-Public Use
  Company Number: US-ELI_LILLY_AND_COMPANY-US201002003829

PATIENT
  Sex: Male

DRUGS (18)
  1. GEMCITABINE HCL [Suspect]
     Indication: PANCREATIC CARCINOMA METASTATIC
     Dosage: 2430 MG, WEEKLY (1/W)
     Route: 042
     Dates: start: 20090828, end: 20091009
  2. OTHER PHARMA COMPANY INV DRUG [Suspect]
     Indication: PANCREATIC CARCINOMA METASTATIC
     Dosage: 24 MG/KG, OTHER
     Route: 042
     Dates: start: 20090828, end: 20091009
  3. ENOXAPARIN SODIUM [Concomitant]
  4. ESOMEPRAZOLE [Concomitant]
  5. PANTOPRAZOLE [Concomitant]
  6. ACETAMINOPHEN AND HYDROCODONE BITARTRATE [Concomitant]
  7. ACETAMINOPHEN [Concomitant]
  8. MORPHINE [Concomitant]
  9. SPIRONOLACTONE [Concomitant]
  10. FUROSEMIDE [Concomitant]
  11. SIMETHICONE [Concomitant]
  12. LACTULOSE [Concomitant]
  13. HYDROMORPHONE HYDROCHLORIDE [Concomitant]
  14. ONDANSETRON [Concomitant]
  15. ALPRAZOLAM [Concomitant]
  16. TEMAZEPAM [Concomitant]
  17. PHENERGAN HCL [Concomitant]
  18. PRIMAXIN /00788801/ [Concomitant]

REACTIONS (6)
  - ASCITES [None]
  - GASTROINTESTINAL HAEMORRHAGE [None]
  - HYPOVENTILATION [None]
  - MALNUTRITION [None]
  - PLEURAL EFFUSION [None]
  - WEIGHT DECREASED [None]
